FAERS Safety Report 11310656 (Version 3)
Quarter: 2015Q3

REPORT INFORMATION
  Report Type: Report from Study
  Country: DE (occurrence: DE)
  Receive Date: 20150725
  Receipt Date: 20150902
  Transmission Date: 20151125
  Serious: Yes (Hospitalization)
  Sender: FDA-Public Use
  Company Number: PHHO2015DE011845

PATIENT
  Age: 40 Year
  Sex: Male
  Weight: 107 kg

DRUGS (7)
  1. PANTOZOL [Concomitant]
     Active Substance: PANTOPRAZOLE SODIUM
     Indication: GASTROOESOPHAGEAL REFLUX DISEASE
     Dosage: 2 DF, QD (2 X DAILY)
     Route: 065
     Dates: start: 20150727
  2. DECORTIN [Concomitant]
     Active Substance: PREDNISONE
     Indication: DERMATITIS ALLERGIC
     Dosage: 50 MG, QD
     Route: 065
     Dates: start: 20150727, end: 20150729
  3. DECORTIN [Concomitant]
     Active Substance: PREDNISONE
     Dosage: 12.5 MG, QD
     Route: 065
     Dates: start: 20150802, end: 20150804
  4. AIN457 [Suspect]
     Active Substance: SECUKINUMAB
     Indication: PSORIASIS
     Dosage: UNK
     Route: 058
     Dates: start: 20140619, end: 20150522
  5. URTIMED [Concomitant]
     Indication: DERMATITIS ALLERGIC
     Dosage: ONCE
     Route: 065
     Dates: start: 20150728, end: 20150728
  6. AIN457 [Suspect]
     Active Substance: SECUKINUMAB
     Dosage: UNK
     Route: 058
     Dates: start: 20150619, end: 20150716
  7. DECORTIN [Concomitant]
     Active Substance: PREDNISONE
     Dosage: 25 MG, QD
     Route: 065
     Dates: start: 20150730, end: 20150801

REACTIONS (1)
  - Laryngitis [Recovered/Resolved]

NARRATIVE: CASE EVENT DATE: 20150709
